FAERS Safety Report 14246816 (Version 3)
Quarter: 2018Q1

REPORT INFORMATION
  Report Type: Spontaneous
  Country: US (occurrence: US)
  Receive Date: 20171204
  Receipt Date: 20180313
  Transmission Date: 20180508
  Serious: No
  Sender: FDA-Public Use
  Company Number: US-PFIZER INC-2017514934

PATIENT
  Age: 48 Year
  Sex: Female
  Weight: 111 kg

DRUGS (2)
  1. METHOTREXATE SODIUM. [Suspect]
     Active Substance: METHOTREXATE SODIUM
     Indication: RHEUMATOID ARTHRITIS
     Dosage: UNK
  2. MOTRIN [Concomitant]
     Active Substance: IBUPROFEN
     Indication: PAIN
     Dosage: 800 MG, 1X/DAY
     Route: 048

REACTIONS (4)
  - Rash [Unknown]
  - Hepatic enzyme increased [Unknown]
  - Gastrointestinal disorder [Recovered/Resolved]
  - Drug hypersensitivity [Unknown]
